FAERS Safety Report 10010032 (Version 2)
Quarter: 2014Q1

REPORT INFORMATION
  Report Type: Spontaneous
  Country: US (occurrence: US)
  Receive Date: 20140312
  Receipt Date: 20140312
  Transmission Date: 20141002
  Serious: No
  Sender: FDA-Public Use
  Company Number: US-INCYTE CORPORATION-2013IN000406

PATIENT
  Age: 72 Year
  Sex: Male
  Weight: 63.95 kg

DRUGS (1)
  1. JAKAFI [Suspect]
     Indication: MYELOFIBROSIS
     Dosage: 10 MG, BID
     Route: 048
     Dates: start: 20130125

REACTIONS (5)
  - Feeling cold [Unknown]
  - Muscular weakness [Unknown]
  - Epistaxis [Unknown]
  - Burning sensation [Unknown]
  - Feeling hot [Unknown]
